FAERS Safety Report 4321922-6 (Version None)
Quarter: 2004Q1

REPORT INFORMATION
  Report Type: 
  Country: None (occurrence: None)
  Receive Date: 20040319
  Receipt Date: 20040309
  Transmission Date: 20041129
  Serious: Yes (Hospitalization)
  Sender: FDA-Public Use
  Company Number: US068838

PATIENT
  Age: 48 Year
  Sex: Female
  Weight: 113.5 kg

DRUGS (8)
  1. ENBREL [Suspect]
     Indication: PSORIASIS
     Dosage: 50 MG, 1 IN 1 WEEKS, SC
     Route: 058
     Dates: start: 20040202
  2. OMEPRAZOLE [Concomitant]
  3. FLUOXETINE HCL [Concomitant]
  4. CELECOXIB [Concomitant]
  5. DEXTROPOXYPHENE NAPSILATE W/ACETAMINOPHEN [Concomitant]
  6. HYDROXYZINE HYDROCHLORIDE [Concomitant]
  7. ALBUTEROL [Concomitant]
  8. CROMOLYN SODIUM [Concomitant]

REACTIONS (2)
  - CHOLECYSTITIS [None]
  - CONDITION AGGRAVATED [None]
